FAERS Safety Report 15105479 (Version 1)
Quarter: 2018Q3

REPORT INFORMATION
  Report Type: Spontaneous
  Country: CL (occurrence: CL)
  Receive Date: 20180704
  Receipt Date: 20180704
  Transmission Date: 20181010
  Serious: Yes (Other)
  Sender: FDA-Public Use
  Company Number: CL-TEVA-2018-CL-920669

PATIENT
  Age: 57 Year
  Sex: Female
  Weight: 69 kg

DRUGS (1)
  1. AUXXIL [Suspect]
     Active Substance: LEVOFLOXACIN
     Dosage: 1 DOSAGE FORMS DAILY;
     Route: 048
     Dates: start: 20180613, end: 20180623

REACTIONS (3)
  - Tracheitis [Not Recovered/Not Resolved]
  - Laryngitis [Not Recovered/Not Resolved]
  - Pharyngitis [Not Recovered/Not Resolved]

NARRATIVE: CASE EVENT DATE: 20180613
